FAERS Safety Report 8802836 (Version 1)
Quarter: 2012Q4

REPORT INFORMATION
  Report Type: 
  Country: US (occurrence: US)
  Receive Date: 20120921
  Receipt Date: 20120921
  Transmission Date: 20130627
  Serious: No
  Sender: FDA-Public Use
  Company Number: US-009507513-1209USA000915

PATIENT

DRUGS (2)
  1. STROMECTOL [Suspect]
     Dosage: 12 mg, UNK
     Route: 048
     Dates: start: 20120831
  2. STROMECTOL [Suspect]
     Dosage: 12 mg, UNK
     Dates: start: 20120828

REACTIONS (2)
  - Inappropriate schedule of drug administration [Unknown]
  - No adverse event [Unknown]
